FAERS Safety Report 10151887 (Version 1)
Quarter: 2014Q2

REPORT INFORMATION
  Report Type: Spontaneous
  Country: US (occurrence: None)
  Receive Date: 20140501
  Receipt Date: 20140501
  Transmission Date: 20141212
  Serious: Yes (Life-Threatening)
  Sender: FDA-Public Use
  Company Number: 54973 AE # 1532

PATIENT
  Age: 59 Year
  Sex: Female

DRUGS (4)
  1. HYLAND^S LEG CRAMPS PM TABLETS [Suspect]
     Indication: MUSCLE SPASMS
     Dosage: 1 TSB DL HS X 2 NIGHTS
  2. SIMPLY SLEEP (DIPHENHYDRAMINE [Concomitant]
  3. TOPROL XL [Concomitant]
  4. PASSION FLOWER EXTRACT [Concomitant]

REACTIONS (2)
  - Palpitations [None]
  - Heart rate increased [None]
